FAERS Safety Report 8561116-1 (Version None)
Quarter: 2012Q3

REPORT INFORMATION
  Report Type: 
  Country: None (occurrence: None)
  Receive Date: 20120802
  Receipt Date: 20120727
  Transmission Date: 20120928
  Serious: Yes (Life-Threatening, Hospitalization)
  Sender: FDA-Public Use
  Company Number: NL-MEDIMMUNE-MEDI-0014848

PATIENT
  Age: 2 Month
  Sex: Female
  Weight: 4.4 kg

DRUGS (9)
  1. THEOFYLILINE [Concomitant]
     Indication: RESPIRATORY ARREST
  2. LACTULOSE [Concomitant]
     Indication: CONSTIPATION
  3. SYNAGIS [Suspect]
     Route: 030
     Dates: start: 20120131, end: 20120131
  4. TETANUS VACCINATION [Concomitant]
     Indication: IMMUNISATION
  5. DIPHTHERIA VACCINATION [Concomitant]
     Indication: IMMUNISATION
  6. FERROFUMARATE [Concomitant]
     Indication: ANAEMIA
  7. SYNAGIS [Suspect]
     Indication: PREMATURE BABY
     Route: 030
     Dates: start: 20120104, end: 20120104
  8. POLIOMYELITIS VACCINATION [Concomitant]
     Indication: IMMUNISATION
  9. WHOOPING COUGH VACCINATION [Concomitant]
     Indication: IMMUNISATION

REACTIONS (3)
  - APNOEA [None]
  - RESPIRATORY ARREST [None]
  - PYREXIA [None]
